FAERS Safety Report 17280210 (Version 2)
Quarter: 2020Q1

REPORT INFORMATION
  Report Type: Spontaneous
  Country: US (occurrence: US)
  Receive Date: 20200117
  Receipt Date: 20200318
  Transmission Date: 20200409
  Serious: Yes (Other)
  Sender: FDA-Public Use
  Company Number: US-SA-2020SA009886

PATIENT
  Age: 41 Year
  Sex: Female

DRUGS (1)
  1. ICY HOT MEDICATED SPRAY [Suspect]
     Active Substance: MENTHOL
     Dosage: UNK

REACTIONS (2)
  - Burns third degree [Not Recovered/Not Resolved]
  - Pain [Not Recovered/Not Resolved]

NARRATIVE: CASE EVENT DATE: 20200108
